FAERS Safety Report 10231863 (Version 1)
Quarter: 2014Q2

REPORT INFORMATION
  Report Type: Report from Study
  Country: EE (occurrence: EE)
  Receive Date: 20140612
  Receipt Date: 20140612
  Transmission Date: 20141212
  Serious: Yes (Hospitalization, Other)
  Sender: FDA-Public Use
  Company Number: EE-ROCHE-1416584

PATIENT
  Age: 46 Year
  Sex: Male
  Weight: 78 kg

DRUGS (5)
  1. PEGASYS [Suspect]
     Indication: CHRONIC HEPATITIS C
     Route: 058
     Dates: start: 20080125
  2. PEGASYS [Suspect]
     Route: 058
     Dates: start: 20080415, end: 20080515
  3. COPEGUS [Suspect]
     Indication: CHRONIC HEPATITIS C
     Route: 048
     Dates: start: 20080125
  4. COPEGUS [Suspect]
     Route: 048
     Dates: start: 20080413
  5. COPEGUS [Suspect]
     Route: 048
     Dates: start: 20080315, end: 20080415

REACTIONS (7)
  - Fatigue [Recovered/Resolved]
  - Nausea [Recovered/Resolved]
  - Dysgeusia [Recovered/Resolved]
  - Pyrexia [Recovered/Resolved]
  - Urinary tract infection [Recovered/Resolved]
  - Cryoglobulinaemia [Recovered/Resolved]
  - Glomerulonephritis [Recovered/Resolved]
